FAERS Safety Report 12284483 (Version 1)
Quarter: 2016Q2

REPORT INFORMATION
  Report Type: Spontaneous
  Country: US (occurrence: US)
  Receive Date: 20160420
  Receipt Date: 20160420
  Transmission Date: 20160815
  Serious: No
  Sender: FDA-Public Use
  Company Number: US-TEVA-601325USA

PATIENT
  Sex: Female

DRUGS (1)
  1. ESTRADIOL W/NORGESTIMATE [Suspect]
     Active Substance: ESTRADIOL\NORGESTIMATE
     Indication: PRODUCT USED FOR UNKNOWN INDICATION
     Dosage: 1 MG; 1 MG/0.09
     Route: 065

REACTIONS (1)
  - Hypertension [Unknown]
